FAERS Safety Report 8988567 (Version 1)
Quarter: 2012Q4

REPORT INFORMATION
  Report Type: 
  Country: US (occurrence: US)
  Receive Date: 20121228
  Receipt Date: 20121228
  Transmission Date: 20130627
  Serious: Yes (Other)
  Sender: FDA-Public Use
  Company Number: PHEH2012US025279

PATIENT
  Age: 9 Year
  Sex: Female

DRUGS (1)
  1. ILARIS [Suspect]
     Dosage: 75 mg, UNK

REACTIONS (2)
  - Kidney infection [Recovered/Resolved]
  - Escherichia infection [Recovered/Resolved]
